FAERS Safety Report 18367894 (Version 2)
Quarter: 2020Q4

REPORT INFORMATION
  Report Type: Report from Study
  Country: None (occurrence: CA)
  Receive Date: 20201009
  Receipt Date: 20201012
  Transmission Date: 20210114
  Serious: Yes (Other)
  Sender: FDA-Public Use
  Company Number: CA-ABBVIE-20K-028-3600296-00

PATIENT
  Age: 65 Year
  Sex: Female

DRUGS (1)
  1. RINVOQ [Suspect]
     Active Substance: UPADACITINIB
     Indication: RHEUMATOID ARTHRITIS
     Route: 048
     Dates: start: 20200206, end: 20201006

REACTIONS (6)
  - Dizziness [Unknown]
  - Dyspnoea [Unknown]
  - Thrombosis [Unknown]
  - Malaise [Unknown]
  - Visual impairment [Unknown]
  - Chest pain [Unknown]

NARRATIVE: CASE EVENT DATE: 2020
